FAERS Safety Report 13647132 (Version 1)
Quarter: 2017Q2

REPORT INFORMATION
  Report Type: Spontaneous
  Country: US (occurrence: US)
  Receive Date: 20170613
  Receipt Date: 20170613
  Transmission Date: 20170830
  Serious: Yes (Other)
  Sender: FDA-Public Use
  Company Number: US-APOTEX-2017AP012693

PATIENT
  Age: 29 Year
  Sex: Female

DRUGS (1)
  1. IMATINIB MESYLATE TABLETS [Suspect]
     Active Substance: IMATINIB MESYLATE
     Indication: CHRONIC MYELOID LEUKAEMIA
     Dosage: 400 MG, PER DAY
     Route: 065

REACTIONS (6)
  - Conjunctival haemorrhage [Unknown]
  - Paraesthesia [Unknown]
  - Periorbital oedema [Unknown]
  - Transaminases increased [Unknown]
  - Exposure during pregnancy [Unknown]
  - Drug level above therapeutic [Unknown]
